FAERS Safety Report 17526355 (Version 1)
Quarter: 2020Q1

REPORT INFORMATION
  Report Type: Spontaneous
  Country: US (occurrence: US)
  Receive Date: 20200311
  Receipt Date: 20200311
  Transmission Date: 20200409
  Serious: No
  Sender: FDA-Public Use
  Company Number: US-GLAXOSMITHKLINE-US2020AMR038405

PATIENT
  Age: 60 Year
  Sex: Female

DRUGS (1)
  1. VENTOLIN [Suspect]
     Active Substance: ALBUTEROL SULFATE
     Indication: PRODUCT USED FOR UNKNOWN INDICATION
     Dosage: UNK
     Route: 065

REACTIONS (4)
  - Concussion [Unknown]
  - Accident [Unknown]
  - Musculoskeletal pain [Unknown]
  - Memory impairment [Unknown]

NARRATIVE: CASE EVENT DATE: 20161213
